FAERS Safety Report 4632414-9 (Version None)
Quarter: 2005Q2

REPORT INFORMATION
  Report Type: 
  Country: None (occurrence: None)
  Receive Date: 20050411
  Receipt Date: 20050403
  Transmission Date: 20051028
  Serious: Yes (Hospitalization)
  Sender: FDA-Public Use
  Company Number: US-JNJFOC-20050401719

PATIENT
  Age: 68 Year
  Sex: Female

DRUGS (5)
  1. TYLENOL (CAPLET) [Suspect]
     Route: 049
  2. TYLENOL (CAPLET) [Suspect]
     Indication: DRUG USE FOR UNKNOWN INDICATION
     Route: 049
  3. TEGRETOL [Concomitant]
  4. DILANTIN [Concomitant]
  5. ZESTRIL [Concomitant]

REACTIONS (4)
  - DRUG ABUSER [None]
  - HYPOAESTHESIA [None]
  - OVERDOSE [None]
  - PHOTOSENSITIVITY REACTION [None]
